FAERS Safety Report 20920694 (Version 1)
Quarter: 2022Q2

REPORT INFORMATION
  Report Type: Spontaneous
  Country: US (occurrence: US)
  Receive Date: 20220606
  Receipt Date: 20220606
  Transmission Date: 20220721
  Serious: Yes (Disabling)
  Sender: FDA-Public Use
  Company Number: US-SPECGX-T202200071

PATIENT
  Age: 22 Year
  Sex: Female

DRUGS (41)
  1. BUPRENORPHINE\NALOXONE [Suspect]
     Active Substance: BUPRENORPHINE\NALOXONE
     Indication: Pain
     Dosage: UNK, (2/0.5 MG  Q2 HOURS ? 4) (DAY 8)
     Route: 060
  2. BUPRENORPHINE\NALOXONE [Suspect]
     Active Substance: BUPRENORPHINE\NALOXONE
     Indication: Drug withdrawal maintenance therapy
     Dosage: UNK, (2/0.5 MG  Q2 HOURS ? 4) (DAY 9)
     Route: 060
  3. BUPRENORPHINE\NALOXONE [Suspect]
     Active Substance: BUPRENORPHINE\NALOXONE
     Dosage: UNK, (8/2 MG ? 1) (DAY 9)
     Route: 060
  4. BUPRENORPHINE\NALOXONE [Suspect]
     Active Substance: BUPRENORPHINE\NALOXONE
     Dosage: UNK, (8/2 MG ? 1) (DAY 10)
     Route: 060
  5. BUPRENORPHINE\NALOXONE [Suspect]
     Active Substance: BUPRENORPHINE\NALOXONE
     Dosage: UNK, (4/1 MG Q4 HOURS ? 6) (SWALLOWED) (DAY 10)
     Route: 048
  6. BUPRENORPHINE\NALOXONE [Suspect]
     Active Substance: BUPRENORPHINE\NALOXONE
     Dosage: UNK, (8/2 MG Q8 HOURS ? 3) (SWALLOWED) (DAY 11)
     Route: 048
  7. BUPRENORPHINE\NALOXONE [Suspect]
     Active Substance: BUPRENORPHINE\NALOXONE
     Dosage: UNK, (8/2, 8/2, 8/2, 12/3 MG (Q6 HOUR) (DAY 12)
     Route: 065
  8. BUPRENORPHINE\NALOXONE [Suspect]
     Active Substance: BUPRENORPHINE\NALOXONE
     Dosage: UNK, (8/2, 8/2, 8/2, 12/3 MG (DAY 13)
     Route: 065
  9. BUPRENORPHINE\NALOXONE [Suspect]
     Active Substance: BUPRENORPHINE\NALOXONE
     Dosage: UNK, (12/3, 8/2, 8/2, 12/3 MG (DAY 14)
     Route: 065
  10. BUPRENORPHINE\NALOXONE [Suspect]
     Active Substance: BUPRENORPHINE\NALOXONE
     Dosage: UNK, (12/3, 8/2, 8/2, 12/3 MG (DAY 15)
     Route: 065
  11. BUPRENORPHINE\NALOXONE [Suspect]
     Active Substance: BUPRENORPHINE\NALOXONE
     Dosage: UNK, (12/3, 8/2, 8/2, 12/3 MG (DAY 16)
     Route: 065
  12. OXYCODONE [Suspect]
     Active Substance: OXYCODONE
     Indication: Pain
     Dosage: 160 MILLIGRAM, Q6H
     Route: 065
  13. OXYCODONE [Suspect]
     Active Substance: OXYCODONE
     Dosage: UNK, 160 X 5 (DAY 2)
     Route: 065
  14. OXYCODONE [Suspect]
     Active Substance: OXYCODONE
     Dosage: UNK, 160 X 6, 60 X 3 (DAY 3)
     Route: 065
  15. OXYCODONE [Suspect]
     Active Substance: OXYCODONE
     Dosage: 160 MILLIGRAM, Q6H X 6 (DAY 4)
     Route: 065
  16. OXYCODONE [Suspect]
     Active Substance: OXYCODONE
     Dosage: 160 MILLIGRAM, Q6H X 6 (DAY 5)
     Route: 065
  17. OXYCODONE [Suspect]
     Active Substance: OXYCODONE
     Dosage: 160 MILLIGRAM, Q6H X 5 (DAY 6)
     Route: 065
  18. OXYCODONE [Suspect]
     Active Substance: OXYCODONE
     Dosage: 160 MILLIGRAM, Q6H X 5 (DAY 7)
     Route: 065
  19. OXYCODONE [Suspect]
     Active Substance: OXYCODONE
     Dosage: 160 MILLIGRAM, Q6H X 6 (DAY 8)
     Route: 065
  20. OXYCODONE [Suspect]
     Active Substance: OXYCODONE
     Dosage: 160 MILLIGRAM, Q4H X 4 (DAY 9)
     Route: 065
  21. HYDROMORPHONE [Suspect]
     Active Substance: HYDROMORPHONE
     Indication: Pain
     Dosage: 16 MILLIGRAM, PRN Q3H X 1 (DAY 6)
     Route: 048
  22. HYDROMORPHONE [Suspect]
     Active Substance: HYDROMORPHONE
     Dosage: 16 MILLIGRAM X 1 (DAY 7)
     Route: 048
  23. BUPRENORPHINE [Suspect]
     Active Substance: BUPRENORPHINE
     Indication: Pain
     Dosage: UNK, 20 MCG/H
     Route: 062
  24. BUPRENORPHINE [Suspect]
     Active Substance: BUPRENORPHINE
     Indication: Drug withdrawal maintenance therapy
     Dosage: UNK, 20 MCG/H (2 PATCHES)
     Route: 062
  25. BUPRENORPHINE [Suspect]
     Active Substance: BUPRENORPHINE
     Dosage: UNK, 20 MCG/H (3 PATCHES)
     Route: 062
  26. HYDROMORPHONE [Suspect]
     Active Substance: HYDROMORPHONE
     Indication: Pain
     Dosage: 4 MILLIGRAM, PRN Q6 H
     Route: 042
  27. HYDROMORPHONE [Suspect]
     Active Substance: HYDROMORPHONE
     Dosage: 4 MILLIGRAM X 4 (DAY 1)
     Route: 042
  28. HYDROMORPHONE [Suspect]
     Active Substance: HYDROMORPHONE
     Dosage: 4 MILLIGRAM X 8 (DAY 2)
     Route: 042
  29. HYDROMORPHONE [Suspect]
     Active Substance: HYDROMORPHONE
     Dosage: 4 MILLIGRAM X 6 (DAY 3)
     Route: 042
  30. HYDROMORPHONE [Suspect]
     Active Substance: HYDROMORPHONE
     Dosage: 4 MILLIGRAM, PRN Q6 H X 4 (DAY 4)
     Route: 042
  31. HYDROMORPHONE [Suspect]
     Active Substance: HYDROMORPHONE
     Dosage: 4 MILLIGRAM, PRN Q6 H X 3 (DAY 5)
     Route: 042
  32. HYDROMORPHONE [Suspect]
     Active Substance: HYDROMORPHONE
     Dosage: 4 MILLIGRAM, PRN Q6 H X 3 (DAY 6)
     Route: 042
  33. HYDROMORPHONE [Suspect]
     Active Substance: HYDROMORPHONE
     Dosage: 4 MILLIGRAM, PRN Q6 H X 4 (DAY 7)
     Route: 042
  34. HYDROMORPHONE [Suspect]
     Active Substance: HYDROMORPHONE
     Dosage: 4 MILLIGRAM, PRN Q6 H X 3 (DAY 8)
     Route: 042
  35. HYDROMORPHONE [Suspect]
     Active Substance: HYDROMORPHONE
     Dosage: 4 MILLIGRAM, PRN Q6 H X 1 (DAY 9)
     Route: 042
  36. CLONIDINE [Suspect]
     Active Substance: CLONIDINE
     Indication: Product used for unknown indication
     Dosage: 0.2 MILLIGRAM, PRN Q6 HOURS
     Route: 065
  37. LOPERAMIDE [Suspect]
     Active Substance: LOPERAMIDE
     Indication: Product used for unknown indication
     Dosage: UNK
     Route: 065
  38. DIPHENHYDRAMINE [Suspect]
     Active Substance: DIPHENHYDRAMINE
     Indication: Product used for unknown indication
     Dosage: UNK
     Route: 065
  39. ACETAMINOPHEN [Suspect]
     Active Substance: ACETAMINOPHEN
     Indication: Product used for unknown indication
     Dosage: UNK
     Route: 065
  40. IBUPROFEN [Suspect]
     Active Substance: IBUPROFEN
     Indication: Product used for unknown indication
     Dosage: UNK
     Route: 065
  41. TRAZODONE [Suspect]
     Active Substance: TRAZODONE HYDROCHLORIDE
     Indication: Product used for unknown indication
     Dosage: UNK
     Route: 065

REACTIONS (10)
  - Imprisonment [Unknown]
  - Loss of personal independence in daily activities [Recovering/Resolving]
  - Drug tolerance [Unknown]
  - Mood swings [Recovering/Resolving]
  - Somnolence [Unknown]
  - Sedation [Unknown]
  - Constipation [Unknown]
  - Withdrawal syndrome [Unknown]
  - Incorrect route of product administration [Unknown]
  - Drug ineffective [Unknown]
